FAERS Safety Report 10371665 (Version 3)
Quarter: 2014Q4

REPORT INFORMATION
  Report Type: Report from Study
  Country: MX (occurrence: MX)
  Receive Date: 20140808
  Receipt Date: 20141113
  Transmission Date: 20150528
  Serious: Yes (Death, Hospitalization)
  Sender: FDA-Public Use
  Company Number: PHHY2014MX097755

PATIENT
  Age: 84 Year
  Sex: Male

DRUGS (4)
  1. CO-DIOVAN [Suspect]
     Active Substance: HYDROCHLOROTHIAZIDE\VALSARTAN
     Dosage: 1 DF(160/12.5MG), QD
     Route: 048
  2. EUTEBROL [Concomitant]
     Indication: BLOOD DISORDER
     Dosage: 2 DF, QD
     Route: 065
  3. CO-DIOVAN [Suspect]
     Active Substance: HYDROCHLOROTHIAZIDE\VALSARTAN
     Indication: HYPERTENSION
     Dosage: 1 DF(80/12.5MG), QD
     Route: 048
  4. ATORVASTATIN [Concomitant]
     Active Substance: ATORVASTATIN
     Indication: BLOOD CHOLESTEROL ABNORMAL
     Dosage: 1 DF, QD
     Route: 065

REACTIONS (2)
  - Gastric disorder [Fatal]
  - Gastric ulcer [Recovered/Resolved]

NARRATIVE: CASE EVENT DATE: 20140716
